FAERS Safety Report 5979807-5 (Version None)
Quarter: 2008Q4

REPORT INFORMATION
  Report Type: 
  Country: None (occurrence: None)
  Receive Date: 20081204
  Receipt Date: 20080220
  Transmission Date: 20090506
  Serious: No
  Sender: FDA-Public Use
  Company Number: US-AMGEN-KDL266271

PATIENT
  Sex: Female

DRUGS (3)
  1. ENBREL [Suspect]
     Indication: RHEUMATOID ARTHRITIS
     Route: 058
     Dates: start: 20060412
  2. METHOTREXATE [Concomitant]
     Dates: start: 19880101
  3. SULFASALAZINE [Concomitant]
     Route: 048
     Dates: start: 20000101

REACTIONS (2)
  - CERUMEN IMPACTION [None]
  - NASOPHARYNGITIS [None]
